FAERS Safety Report 17494745 (Version 1)
Quarter: 2020Q1

REPORT INFORMATION
  Report Type: Spontaneous
  Country: US (occurrence: US)
  Receive Date: 20200303
  Receipt Date: 20200303
  Transmission Date: 20200409
  Serious: No
  Sender: FDA-Public Use
  Company Number: US-AMNEAL PHARMACEUTICALS-2019-AMRX-02622

PATIENT
  Sex: Female

DRUGS (3)
  1. RYTARY [Suspect]
     Active Substance: CARBIDOPA\LEVODOPA
     Indication: PRODUCT USED FOR UNKNOWN INDICATION
     Dosage: 23.75/95 MG, 2 CAP DAILY, CAP AT 1ST DOSE AND 3RD DOSE POINT (ALTERNATING WITH 36.25/145MG
     Route: 048
  2. RYTARY [Suspect]
     Active Substance: CARBIDOPA\LEVODOPA
     Dosage: 23.75/95 MG, ANYWHERE FROM 3-5 TIMES A DAY AND TAKING LESS OF THE 36.25/145 MG CAP
     Route: 048
  3. RYTARY [Suspect]
     Active Substance: CARBIDOPA\LEVODOPA
     Dosage: 36.25/145MG, 2 CAP DAILY, 1 CAP AT 2ND DOSE AND 4TH DOSE POINT (ALTERNATING WITH 23.75/95 MG)
     Route: 048

REACTIONS (3)
  - Epigastric discomfort [Unknown]
  - Nausea [Unknown]
  - Drug intolerance [Unknown]
